FAERS Safety Report 15119517 (Version 1)
Quarter: 2018Q3

REPORT INFORMATION
  Report Type: Spontaneous
  Country: US (occurrence: US)
  Receive Date: 20180709
  Receipt Date: 20180709
  Transmission Date: 20181010
  Serious: No
  Sender: FDA-Public Use
  Company Number: US-PFIZER INC-2018264006

PATIENT
  Age: 61 Year
  Sex: Female
  Weight: 65.76 kg

DRUGS (12)
  1. FOLIC ACID. [Concomitant]
     Active Substance: FOLIC ACID
     Indication: STOMATITIS
     Dosage: 1 MG, DAILY
     Route: 048
  2. LISINOPRIL AND HYDROCHLOROTHIAZIDE [Concomitant]
     Active Substance: HYDROCHLOROTHIAZIDE\LISINOPRIL
     Indication: FLUID RETENTION
  3. METHOTREXATE. [Concomitant]
     Active Substance: METHOTREXATE
     Indication: RHEUMATOID ARTHRITIS
     Dosage: 7.5 MG, 2X/WEEK (2.5MG, 3 TABLETS ON MONDAY AND THURSDAY WEEKLY)
     Dates: start: 2014
  4. XANAX [Concomitant]
     Active Substance: ALPRAZOLAM
     Indication: PAIN
     Dosage: 0.5 MG, 1X/DAY
     Route: 048
     Dates: start: 2017
  5. CYCLOBENZAPRINE. [Concomitant]
     Active Substance: CYCLOBENZAPRINE
     Indication: MUSCLE RELAXANT THERAPY
     Dosage: 10 MG, 2X/DAY
     Route: 048
  6. ENBREL [Concomitant]
     Active Substance: ETANERCEPT
     Indication: RHEUMATOID ARTHRITIS
     Dosage: 50 MG, WEEKLY
     Dates: start: 2015
  7. CHANTIX [Suspect]
     Active Substance: VARENICLINE TARTRATE
     Dosage: 1 MG, 2X/DAY
     Route: 048
     Dates: start: 20180616
  8. MORPHINE [Concomitant]
     Active Substance: MORPHINE
     Indication: PAIN
     Dosage: 15 MG, 3X/DAY
  9. CHANTIX [Suspect]
     Active Substance: VARENICLINE TARTRATE
     Indication: SMOKING CESSATION THERAPY
     Dosage: 0.5 MG, UNK
  10. LISINOPRIL AND HYDROCHLOROTHIAZIDE [Concomitant]
     Active Substance: HYDROCHLOROTHIAZIDE\LISINOPRIL
     Indication: HYPERTENSION
     Dosage: UNK; (HYDROCHLOROTHIAZIDE 25 MG/LISINOPRIL 20 MG)
     Route: 048
  11. MEGARED OMEGA 3 [Concomitant]
     Dosage: UNK
  12. MORPHINE [Concomitant]
     Active Substance: MORPHINE
     Indication: PAIN

REACTIONS (3)
  - Pain [Not Recovered/Not Resolved]
  - Vomiting [Not Recovered/Not Resolved]
  - Nausea [Not Recovered/Not Resolved]

NARRATIVE: CASE EVENT DATE: 201806
